FAERS Safety Report 8023866-5 (Version None)
Quarter: 2012Q1

REPORT INFORMATION
  Report Type: 
  Country: None (occurrence: None)
  Receive Date: 20120105
  Receipt Date: 20120103
  Transmission Date: 20120608
  Serious: No
  Sender: FDA-Public Use
  Company Number: US-PFIZER INC-2012001156

PATIENT
  Age: 9 Year
  Sex: Male
  Weight: 34.014 kg

DRUGS (1)
  1. CHILDREN'S ADVIL [Suspect]
     Indication: VIRAL INFECTION
     Dosage: UNK
     Route: 048

REACTIONS (1)
  - DYSPEPSIA [None]
